FAERS Safety Report 4485064-1 (Version None)
Quarter: 2004Q4

REPORT INFORMATION
  Report Type: 
  Country: None (occurrence: None)
  Receive Date: 20040921
  Receipt Date: 20031002
  Transmission Date: 20050328
  Serious: Yes (Death, Hospitalization)
  Sender: FDA-Public Use
  Company Number: 163-20785-03010253(1)

PATIENT
  Age: 63 Year
  Sex: Female

DRUGS (5)
  1. THALOMID [Suspect]
     Indication: MULTIPLE MYELOMA
     Dosage: SEE IMAGE, ORAL
     Route: 048
     Dates: start: 20020911, end: 20021212
  2. THALOMID [Suspect]
     Indication: MULTIPLE MYELOMA
     Dosage: SEE IMAGE, ORAL
     Route: 048
     Dates: start: 20021213, end: 20030802
  3. VELCADE [Suspect]
     Indication: MULTIPLE MYELOMA
     Dosage: 2.3 MG, INTRAVENOUS
     Route: 042
     Dates: start: 20030815, end: 20030819
  4. MELPHALAN (MELPHALAN) [Suspect]
     Indication: MULTIPLE MYELOMA
     Dosage: 200 MG/M2, ONCE
     Dates: start: 20020623, end: 20020623
  5. AUTOLOGUS TRANSPLANT [Suspect]
     Indication: MULTIPLE MYELOMA
     Dates: start: 20020624, end: 20020624

REACTIONS (3)
  - DEATH [None]
  - DISEASE PROGRESSION [None]
  - FEBRILE NEUTROPENIA [None]
